FAERS Safety Report 24168292 (Version 2)
Quarter: 2024Q3

REPORT INFORMATION
  Report Type: Spontaneous
  Country: FR (occurrence: FR)
  Receive Date: 20240802
  Receipt Date: 20240812
  Transmission Date: 20241017
  Serious: Yes (Disabling)
  Sender: FRESENIUS KABI
  Company Number: None

PATIENT
  Age: 7 Year
  Sex: Male

DRUGS (2)
  1. ROPIVACAINE [Suspect]
     Active Substance: ROPIVACAINE
     Indication: Analgesic therapy
     Route: 008
     Dates: start: 20240715, end: 20240716
  2. SUFENTANIL CITRATE [Suspect]
     Active Substance: SUFENTANIL CITRATE
     Indication: Analgesic therapy
     Route: 008
     Dates: start: 20240715, end: 20240716

REACTIONS (3)
  - Motor dysfunction [Not Recovered/Not Resolved]
  - Anterior spinal artery syndrome [Not Recovered/Not Resolved]
  - Spinal cord ischaemia [Not Recovered/Not Resolved]

NARRATIVE: CASE EVENT DATE: 20240715
